FAERS Safety Report 4692022-0 (Version None)
Quarter: 2005Q2

REPORT INFORMATION
  Report Type: 
  Country: None (occurrence: None)
  Receive Date: 20050614
  Receipt Date: 20050603
  Transmission Date: 20051028
  Serious: Yes (Hospitalization)
  Sender: FDA-Public Use
  Company Number: NALX20050004

PATIENT
  Age: 23 Year
  Sex: Male

DRUGS (1)
  1. NALOXONE [Suspect]
     Indication: DRUG TOXICITY
     Dosage: IV
     Route: 042

REACTIONS (11)
  - ACUTE RESPIRATORY DISTRESS SYNDROME [None]
  - AGITATION [None]
  - DRUG ABUSER [None]
  - HYPOXIA [None]
  - LOSS OF CONSCIOUSNESS [None]
  - PHLEBOTHROMBOSIS [None]
  - PNEUMONIA ASPIRATION [None]
  - PULMONARY TOXICITY [None]
  - SELF-MEDICATION [None]
  - SPUTUM CULTURE POSITIVE [None]
  - VOMITING [None]
